FAERS Safety Report 15474175 (Version 3)
Quarter: 2020Q1

REPORT INFORMATION
  Report Type: Spontaneous
  Country: US (occurrence: US)
  Receive Date: 20181008
  Receipt Date: 20200302
  Transmission Date: 20200409
  Serious: Yes (Hospitalization, Other)
  Sender: FDA-Public Use
  Company Number: US-SA-2018SA275862

PATIENT
  Age: 70 Year
  Sex: Female

DRUGS (3)
  1. PRALUENT [Suspect]
     Active Substance: ALIROCUMAB
     Indication: HYPERLIPIDAEMIA
     Dosage: 75 MG, QOW
     Route: 058
  2. DUPILUMAB [Concomitant]
     Active Substance: DUPILUMAB
     Indication: ASTHMA
     Dosage: 400 MG, 1X
     Route: 058
     Dates: start: 20191120
  3. DUPILUMAB [Concomitant]
     Active Substance: DUPILUMAB
     Dosage: 200 MG, QOW
     Route: 058

REACTIONS (12)
  - General physical health deterioration [Unknown]
  - Muscle spasms [Unknown]
  - Dyspnoea [Unknown]
  - Herpes zoster [Unknown]
  - Upper respiratory tract infection [Not Recovered/Not Resolved]
  - Malaise [Unknown]
  - Pain [Unknown]
  - Lactic acidosis [Unknown]
  - Rash [Unknown]
  - Condition aggravated [Unknown]
  - Bronchitis [Unknown]
  - Cough [Unknown]
